FAERS Safety Report 15705225 (Version 1)
Quarter: 2018Q4

REPORT INFORMATION
  Report Type: Report from Study
  Country: US (occurrence: US)
  Receive Date: 20181210
  Receipt Date: 20181210
  Transmission Date: 20190205
  Serious: Yes (Death, Hospitalization, Other)
  Sender: FDA-Public Use
  Company Number: US-JUBILANT CADISTA PHARMACEUTICALS-2018JUB00488

PATIENT
  Age: 66 Year
  Sex: Male
  Weight: 92.89 kg

DRUGS (17)
  1. LANTUS [Concomitant]
     Active Substance: INSULIN GLARGINE
     Dosage: 10 U
     Dates: start: 20180925
  2. DABIGATRAN [Concomitant]
     Active Substance: DABIGATRAN
     Dosage: 150 MG
     Dates: start: 20180622, end: 20180806
  3. HYDROCORTISONE. [Concomitant]
     Active Substance: HYDROCORTISONE
     Dosage: UNK
     Dates: start: 20180828
  4. PROCHLORPERAZINE. [Concomitant]
     Active Substance: PROCHLORPERAZINE
     Dosage: 10 MG
     Dates: start: 20180622
  5. CEPHALEXIN. [Concomitant]
     Active Substance: CEPHALEXIN
     Dosage: UNK
     Dates: start: 20180930
  6. SENNA [Concomitant]
     Active Substance: SENNA LEAF\SENNOSIDES\SENNOSIDES A AND B
     Dosage: 8.6 MG
     Dates: start: 20180622
  7. PREDNISONE. [Suspect]
     Active Substance: PREDNISONE
     Indication: ACUTE GRAFT VERSUS HOST DISEASE
     Dosage: 20 MG, 1X/DAY
     Route: 048
     Dates: start: 20180828, end: 20181002
  8. SACUBITRIL AND VALSARTAN [Concomitant]
     Dosage: UNK
     Dates: start: 20180606
  9. SOTALOL. [Concomitant]
     Active Substance: SOTALOL
     Dosage: 80 MG
     Dates: start: 20180606
  10. METHYLPREDNISOLONE. [Suspect]
     Active Substance: METHYLPREDNISOLONE
     Indication: ACUTE GRAFT VERSUS HOST DISEASE
     Dosage: 32 MG
     Route: 042
     Dates: start: 20181012, end: 20181012
  11. TACROLIMUS. [Suspect]
     Active Substance: TACROLIMUS
     Dosage: 0.5 MG, 1X/DAY
     Dates: start: 20180618, end: 20181005
  12. LISPRO INSULIN [Concomitant]
     Active Substance: INSULIN LISPRO
     Dosage: UNK
     Dates: start: 20171227
  13. ACYCLOVIR. [Concomitant]
     Active Substance: ACYCLOVIR
     Dosage: 800 MG
     Dates: start: 20180606
  14. BACTRIM [Concomitant]
     Active Substance: SULFAMETHOXAZOLE\TRIMETHOPRIM
     Dosage: UNK
     Dates: start: 20180917
  15. INCB039110 (ITACITINIB) OR PLACEBO [Suspect]
     Active Substance: ITACITINIB
     Indication: ACUTE GRAFT VERSUS HOST DISEASE
     Dosage: 200 MG, 1X/DAY
     Route: 048
     Dates: start: 20180828, end: 20181002
  16. TACROLIMUS. [Suspect]
     Active Substance: TACROLIMUS
     Dosage: 0.5 MG, 1X/DAY
     Dates: start: 20181012
  17. METOPROLOL. [Concomitant]
     Active Substance: METOPROLOL
     Dosage: 50 MG
     Dates: start: 20180806

REACTIONS (9)
  - Hypotension [Recovered/Resolved]
  - Enterovirus infection [Unknown]
  - Hypogammaglobulinaemia [Unknown]
  - Epstein-Barr virus infection [Recovered/Resolved]
  - Urinary tract infection [Unknown]
  - Dehydration [Unknown]
  - Graft versus host disease [Fatal]
  - Septic shock [Recovered/Resolved]
  - Rhinovirus infection [Unknown]

NARRATIVE: CASE EVENT DATE: 2018
